FAERS Safety Report 7040319-1 (Version None)
Quarter: 2010Q4

REPORT INFORMATION
  Report Type: 
  Country: None (occurrence: None)
  Receive Date: 20101012
  Receipt Date: 20101005
  Transmission Date: 20110411
  Serious: No
  Sender: FDA-Public Use
  Company Number: US-PFIZER INC-2010127113

PATIENT
  Sex: Female
  Weight: 87.528 kg

DRUGS (4)
  1. GENOTROPIN [Suspect]
     Indication: HYPOPITUITARISM
     Dosage: 0.2 MG, 1X/DAY
     Dates: start: 20080101
  2. GENOTROPIN [Suspect]
     Indication: MUSCLE DISORDER
  3. LEVOTHYROXINE [Concomitant]
     Dosage: 5 MG, UNK
  4. HYDROCORTISONE [Concomitant]
     Dosage: UNK

REACTIONS (1)
  - TREMOR [None]
